FAERS Safety Report 8133297-5 (Version None)
Quarter: 2012Q1

REPORT INFORMATION
  Report Type: 
  Country: None (occurrence: None)
  Receive Date: 20120213
  Receipt Date: 20120131
  Transmission Date: 20120608
  Serious: Yes (Life-Threatening)
  Sender: FDA-Public Use
  Company Number: ES-ROCHE-1025219

PATIENT
  Sex: Male

DRUGS (5)
  1. ACTEMRA [Suspect]
     Indication: RHEUMATOID ARTHRITIS
     Route: 042
     Dates: start: 20111213, end: 20111213
  2. IBUPROFEN [Concomitant]
     Indication: BACK PAIN
     Route: 048
     Dates: start: 20100101
  3. MANIDON [Concomitant]
     Indication: MYOCARDIAL ISCHAEMIA
     Route: 048
     Dates: start: 20100101
  4. ATORVASTATIN CALCIUM [Concomitant]
     Indication: HYPERCHOLESTEROLAEMIA
     Route: 048
     Dates: start: 20100101
  5. VALSARTAN [Concomitant]
     Indication: HYPERTENSION
     Route: 048
     Dates: start: 20100101

REACTIONS (1)
  - ACUTE CORONARY SYNDROME [None]
